FAERS Safety Report 9712509 (Version 2)
Quarter: 2013Q4

REPORT INFORMATION
  Report Type: Spontaneous
  Country: US (occurrence: US)
  Receive Date: 20131126
  Receipt Date: 20131126
  Transmission Date: 20140711
  Serious: No
  Sender: FDA-Public Use
  Company Number: US-BRISTOL-MYERS SQUIBB COMPANY-19193861

PATIENT
  Age: 70 Year
  Sex: Female

DRUGS (6)
  1. BYDUREON [Suspect]
     Indication: TYPE 2 DIABETES MELLITUS
     Dosage: 73044C:SEP13,73258:FEB13
     Route: 058
     Dates: start: 20130724, end: 20130804
  2. CRESTOR [Concomitant]
  3. LOSARTAN [Concomitant]
  4. HYDROCHLOROTHIAZIDE [Concomitant]
  5. OMEPRAZOLE [Concomitant]
  6. SYNTHROID [Concomitant]

REACTIONS (1)
  - Hypersensitivity [Unknown]
